FAERS Safety Report 23121404 (Version 1)
Quarter: 2023Q4

REPORT INFORMATION
  Report Type: Spontaneous
  Country: FR (occurrence: FR)
  Receive Date: 20231029
  Receipt Date: 20231029
  Transmission Date: 20240110
  Serious: Yes (Death, Other)
  Sender: FDA-Public Use
  Company Number: FR-AFSSAPS-NY2023001413

PATIENT
  Age: 72 Year
  Sex: Female
  Weight: 92.4 kg

DRUGS (11)
  1. VALGANCICLOVIR [Suspect]
     Active Substance: VALGANCICLOVIR
     Indication: Cytomegalovirus colitis
     Dosage: 300 MILLIGRAM, EVERY WEEK
     Route: 042
     Dates: start: 20230504, end: 20230527
  2. VALGANCICLOVIR [Suspect]
     Active Substance: VALGANCICLOVIR
     Dosage: 100 MILLIGRAM, ONCE A DAY
     Route: 065
     Dates: start: 20230603, end: 20230603
  3. GANCICLOVIR SODIUM [Suspect]
     Active Substance: GANCICLOVIR SODIUM
     Indication: Cytomegalovirus colitis
     Dosage: 330 MILLIGRAM, EVERY WEEK
     Route: 042
     Dates: start: 20230425, end: 20230504
  4. GANCICLOVIR SODIUM [Suspect]
     Active Substance: GANCICLOVIR SODIUM
     Dosage: 100 MILLIGRAM
     Route: 042
     Dates: start: 20230527, end: 20230530
  5. PREDNISONE [Concomitant]
     Active Substance: PREDNISONE
     Indication: Anti-neutrophil cytoplasmic antibody positive vasculitis
     Dosage: UNK
     Route: 048
     Dates: start: 20230130
  6. ISONIAZID [Concomitant]
     Active Substance: ISONIAZID
     Indication: Latent tuberculosis
     Dosage: UNK
     Route: 048
     Dates: start: 202302
  7. ATOVAQUONE [Concomitant]
     Active Substance: ATOVAQUONE
     Indication: Infection
     Dosage: UNK
     Route: 042
  8. FUROSEMIDE [Concomitant]
     Active Substance: FUROSEMIDE
     Indication: Renal failure
     Dosage: 500 MILLIGRAM, ONCE A DAY
     Route: 048
     Dates: start: 20230515, end: 20230606
  9. NOVORAPID [Concomitant]
     Active Substance: INSULIN ASPART
     Indication: Diabetes mellitus
     Dosage: UNK
     Route: 058
  10. HEPARIN [Concomitant]
     Active Substance: HEPARIN SODIUM
     Indication: Thrombosis prophylaxis
     Dosage: 1 DOSAGE FORM, ONCE A DAY
     Route: 058
  11. INSULIN GLARGINE [Concomitant]
     Active Substance: INSULIN GLARGINE
     Indication: Diabetes mellitus
     Dosage: UNK
     Route: 058

REACTIONS (1)
  - Pancytopenia [Fatal]

NARRATIVE: CASE EVENT DATE: 20230515
